FAERS Safety Report 8846792 (Version 2)
Quarter: 2013Q1

REPORT INFORMATION
  Report Type: Spontaneous
  Country: US (occurrence: US)
  Receive Date: 20121018
  Receipt Date: 20130205
  Transmission Date: 20140127
  Serious: Yes (Hospitalization, Other)
  Sender: FDA-Public Use
  Company Number: US-BAYER-2012-108264

PATIENT
  Age: 30 Year
  Sex: Female
  Weight: 60.77 kg

DRUGS (2)
  1. YAZ [Suspect]
     Indication: CONTRACEPTION
     Dosage: UNK
     Dates: start: 20090728, end: 201007
  2. IMITREX [Concomitant]

REACTIONS (7)
  - Cholelithiasis [None]
  - Cholecystitis chronic [None]
  - Injury [None]
  - Pain [None]
  - Nausea [None]
  - Vomiting [None]
  - Abdominal pain upper [None]
